FAERS Safety Report 6229476-4 (Version None)
Quarter: 2009Q2

REPORT INFORMATION
  Report Type: 
  Country: None (occurrence: None)
  Receive Date: 20090615
  Receipt Date: 20090608
  Transmission Date: 20091009
  Serious: Yes (Hospitalization)
  Sender: FDA-Public Use
  Company Number: A0764646A

PATIENT
  Age: 53 Year
  Sex: Male
  Weight: 131.8 kg

DRUGS (3)
  1. AVANDIA [Suspect]
     Dosage: 4MG TWICE PER DAY
     Route: 048
     Dates: start: 19990101, end: 20040101
  2. GLUCOPHAGE [Concomitant]
     Dosage: 500MG TWICE PER DAY
     Dates: start: 20011011, end: 20021001
  3. METFORMIN HYDROCHLORIDE [Concomitant]
     Dosage: 500MG TWICE PER DAY
     Dates: start: 20021001, end: 20080601

REACTIONS (1)
  - CEREBROVASCULAR ACCIDENT [None]
